FAERS Safety Report 9030249 (Version 1)
Quarter: 2013Q1

REPORT INFORMATION
  Report Type: Spontaneous
  Country: US (occurrence: US)
  Receive Date: 20130122
  Receipt Date: 20130122
  Transmission Date: 20140127
  Serious: Yes (Other)
  Sender: FDA-Public Use
  Company Number: US-BAXTER-2013BAX001575

PATIENT
  Age: 75 None
  Sex: Male

DRUGS (2)
  1. DIANEAL LOW CALCIUM [Suspect]
     Indication: PERITONEAL DIALYSIS
     Dosage: 2500 FILL VOLUMES FOR 4 CYCLES WITH LAST FILL OF 2500
     Route: 033
  2. DIANEAL LOW CALCIUM [Suspect]
     Indication: PERITONEAL DIALYSIS
     Dosage: 2500 FILL VOLUMES FOR 4 CYCLES WITH LAST FILL OF 2500
     Route: 033

REACTIONS (3)
  - Renal mass [Unknown]
  - Renal pain [Recovered/Resolved]
  - Musculoskeletal pain [Recovered/Resolved]
